FAERS Safety Report 6855181-7 (Version None)
Quarter: 2010Q3

REPORT INFORMATION
  Report Type: 
  Country: None (occurrence: None)
  Receive Date: 20100717
  Receipt Date: 20081125
  Transmission Date: 20110219
  Serious: Yes (Other)
  Sender: FDA-Public Use
  Company Number: US-PFIZER INC-2007108851

PATIENT
  Age: 31 Year
  Sex: Female
  Weight: 65.76 kg

DRUGS (1)
  1. CHANTIX [Suspect]
     Indication: SMOKING CESSATION THERAPY
     Dosage: 1MG TABLET TWICE DAILY
     Route: 048
     Dates: start: 20070823, end: 20070920

REACTIONS (2)
  - ABNORMAL DREAMS [None]
  - NIGHTMARE [None]
